FAERS Safety Report 4557460-5 (Version None)
Quarter: 2005Q1

REPORT INFORMATION
  Report Type: 
  Country: None (occurrence: None)
  Receive Date: 20050118
  Receipt Date: 20050104
  Transmission Date: 20050727
  Serious: Yes (Other)
  Sender: FDA-Public Use
  Company Number: 2005003682

PATIENT
  Age: 54 Year
  Sex: Female
  Weight: 68.0396 kg

DRUGS (5)
  1. ROGAINE [Suspect]
     Indication: ALOPECIA
     Dosage: 1 ML,  BID, TOPICAL
     Route: 061
     Dates: start: 20041001
  2. PREDNISOLONE ACETATE [Concomitant]
  3. BRINZOLAMIDE (BRINZOLAMIDE) [Concomitant]
  4. ATROPINE [Concomitant]
  5. BRIMONIDINE TARTRATE (BRIMONIDINE TARTRATE) [Concomitant]

REACTIONS (4)
  - BLINDNESS [None]
  - DISEASE RECURRENCE [None]
  - LYMPHOMA [None]
  - MALIGNANT NEOPLASM OF EYE [None]
